FAERS Safety Report 22388785 (Version 1)
Quarter: 2023Q2

REPORT INFORMATION
  Report Type: Spontaneous
  Country: US (occurrence: US)
  Receive Date: 20230531
  Receipt Date: 20230531
  Transmission Date: 20230722
  Serious: Yes (Other)
  Sender: FDA-Public Use
  Company Number: ENDG22-07036

PATIENT
  Sex: Male

DRUGS (2)
  1. VIGABATRIN [Suspect]
     Active Substance: VIGABATRIN
     Indication: Infantile spasms
     Dosage: 12.4 ML, BID (DILUTE TWO PACKETS IN 20 ML OF WATER AND DRINK 12.4 ML IMMEDIATELY)
     Route: 048
  2. VIGABATRIN [Suspect]
     Active Substance: VIGABATRIN
     Indication: Infantile spasms
     Dosage: 12.4 ML, BID (DILUTE TWO PACKETS IN 20 ML OF WATER AND DRINK 12.4 ML IMMEDIATELY)
     Route: 048

REACTIONS (1)
  - Seizure [Unknown]
